FAERS Safety Report 10434404 (Version 1)
Quarter: 2014Q3

REPORT INFORMATION
  Report Type: Spontaneous
  Country: DE (occurrence: CH)
  Receive Date: 20140905
  Receipt Date: 20140905
  Transmission Date: 20150326
  Serious: Yes (Hospitalization)
  Sender: FDA-Public Use
  Company Number: CH-FRI-1000070435

PATIENT
  Sex: Female

DRUGS (4)
  1. ESCITALOPRAM [Suspect]
     Active Substance: ESCITALOPRAM OXALATE
     Dosage: 10 MG
     Route: 048
     Dates: end: 20140719
  2. MEMANTINE [Suspect]
     Active Substance: MEMANTINE
     Dosage: 1 DF
     Route: 048
     Dates: end: 20140719
  3. BELOC [Concomitant]
     Active Substance: METOPROLOL TARTRATE
  4. FLUDEX-SLOW RELEASE [Suspect]
     Active Substance: INDAPAMIDE
     Dosage: 1.5 MG
     Route: 048

REACTIONS (5)
  - Head injury [Unknown]
  - Fall [Unknown]
  - Electrocardiogram QT prolonged [Recovered/Resolved]
  - Contusion [Unknown]
  - Deep vein thrombosis [Unknown]

NARRATIVE: CASE EVENT DATE: 201407
